FAERS Safety Report 8877490 (Version 1)
Quarter: 2012Q4

REPORT INFORMATION
  Report Type: Spontaneous
  Country: DE (occurrence: None)
  Receive Date: 20121025
  Receipt Date: 20121025
  Transmission Date: 20130627
  Serious: Yes (Life-Threatening)
  Sender: FDA-Public Use
  Company Number: ACO_32466_2012

PATIENT
  Age: 49 Year
  Sex: Male

DRUGS (1)
  1. FAMPRIDINE [Suspect]
     Route: 048
     Dates: start: 20120502

REACTIONS (1)
  - Suicide attempt [None]
